FAERS Safety Report 8059265-X (Version None)
Quarter: 2012Q1

REPORT INFORMATION
  Report Type: 
  Country: None (occurrence: None)
  Receive Date: 20120120
  Receipt Date: 20120116
  Transmission Date: 20120608
  Serious: No
  Sender: FDA-Public Use
  Company Number: US-BAYER-2012-006168

PATIENT
  Age: 73 Year
  Sex: Male
  Weight: 73 kg

DRUGS (2)
  1. ALEVE (CAPLET) [Suspect]
     Indication: MYALGIA
     Dosage: 2 DF, QD
     Route: 048
     Dates: start: 20120114, end: 20120116
  2. TAMSULOSIN HCL [Concomitant]
     Dosage: UNK

REACTIONS (1)
  - NO ADVERSE EVENT [None]
